FAERS Safety Report 5477389-8 (Version None)
Quarter: 2007Q4

REPORT INFORMATION
  Report Type: 
  Country: None (occurrence: None)
  Receive Date: 20071001
  Receipt Date: 20070925
  Transmission Date: 20080405
  Serious: Yes (Other)
  Sender: FDA-Public Use
  Company Number: 2007SP014603

PATIENT
  Age: 74 Year

DRUGS (2)
  1. TEMODAL [Suspect]
     Indication: GLIOBLASTOMA MULTIFORME
     Dosage: PO
     Route: 048
     Dates: start: 20070101
  2. INTERFERON BETA [Concomitant]

REACTIONS (2)
  - MALNUTRITION [None]
  - PULMONARY OEDEMA [None]
